FAERS Safety Report 19961211 (Version 2)
Quarter: 2021Q4

REPORT INFORMATION
  Report Type: Spontaneous
  Country: PL (occurrence: PL)
  Receive Date: 20211016
  Receipt Date: 20211028
  Transmission Date: 20220303
  Serious: Yes (Other)
  Sender: FDA-Public Use
  Company Number: NVSC2021PL234193

PATIENT
  Sex: Female

DRUGS (14)
  1. TACROLIMUS [Suspect]
     Active Substance: TACROLIMUS
     Indication: Renal transplant
     Dosage: 3 MG, QD
     Route: 048
     Dates: start: 20160304, end: 20160915
  2. TACROLIMUS [Suspect]
     Active Substance: TACROLIMUS
     Dosage: 3 UNK, QD
     Route: 065
     Dates: start: 20191109
  3. PROGRAF [Suspect]
     Active Substance: TACROLIMUS
     Indication: Product used for unknown indication
     Dosage: UNK
     Route: 065
  4. PROGRAF [Suspect]
     Active Substance: TACROLIMUS
     Dosage: UNK UNK, QD
     Route: 048
     Dates: start: 20160916
  5. MYCOPHENOLATE MOFETIL [Concomitant]
     Active Substance: MYCOPHENOLATE MOFETIL
     Indication: Immunosuppression
     Dosage: 1500 UNKNOWN UNIT, TOTAL DAILY DOSE
     Route: 065
     Dates: start: 20150917, end: 20180125
  6. MYCOPHENOLATE MOFETIL [Concomitant]
     Active Substance: MYCOPHENOLATE MOFETIL
     Dosage: 1000 UNKNOWN UNIT, TOTAL DAILY DOSE
     Route: 065
     Dates: start: 20190628, end: 20201221
  7. MYCOPHENOLATE MOFETIL [Concomitant]
     Active Substance: MYCOPHENOLATE MOFETIL
     Dosage: 1500 UNKNOWN UNIT, TOTAL DAILY DOSE
     Route: 065
     Dates: start: 20201222
  8. METHYLPREDNISOLONE [Concomitant]
     Active Substance: METHYLPREDNISOLONE
     Indication: Immunosuppression
     Dosage: 4 UNKNOWN UNIT, TOTAL DAILY DOSE
     Route: 065
     Dates: start: 20141030, end: 20180125
  9. METHYLPREDNISOLONE [Concomitant]
     Active Substance: METHYLPREDNISOLONE
     Dosage: 8 UNKNOWN UNIT, TOTAL DAILY DOSE
     Route: 065
     Dates: start: 20180126, end: 20190627
  10. METHYLPREDNISOLONE [Concomitant]
     Active Substance: METHYLPREDNISOLONE
     Dosage: 6 UNKNOWN UNIT, TOTAL DAILY DOSE
     Route: 065
     Dates: start: 20180531, end: 20180830
  11. METHYLPREDNISOLONE [Concomitant]
     Active Substance: METHYLPREDNISOLONE
     Dosage: 4 UNKNOWN UNIT, TOTAL DAILY DOSE
     Route: 065
     Dates: start: 20180831, end: 20201221
  12. METHYLPREDNISOLONE [Concomitant]
     Active Substance: METHYLPREDNISOLONE
     Dosage: 8 UNKNOWN UNIT, TOTAL DAILY DOSE
     Route: 065
     Dates: start: 20201222, end: 20210225
  13. METHYLPREDNISOLONE [Concomitant]
     Active Substance: METHYLPREDNISOLONE
     Dosage: 6 UNKNOWN UNIT, TOTAL DAILY DOSE
     Route: 065
     Dates: start: 20210226, end: 20210524
  14. METHYLPREDNISOLONE [Concomitant]
     Active Substance: METHYLPREDNISOLONE
     Dosage: 4 UNKNOWN UNIT, TOTAL DAILY DOSE
     Route: 065
     Dates: start: 20210525

REACTIONS (1)
  - Borrelia infection [Recovered/Resolved]

NARRATIVE: CASE EVENT DATE: 20191109
